FAERS Safety Report 17169014 (Version 1)
Quarter: 2019Q4

REPORT INFORMATION
  Report Type: Report from Study
  Country: RU (occurrence: RU)
  Receive Date: 20191218
  Receipt Date: 20191218
  Transmission Date: 20200122
  Serious: Yes (Death, Life-Threatening, Hospitalization)
  Sender: FDA-Public Use
  Company Number: RU-ASTRAZENECA-2016SE85192

PATIENT
  Age: 23212 Day
  Sex: Female

DRUGS (20)
  1. MEDI4736 [Suspect]
     Active Substance: DURVALUMAB
     Indication: NON-SMALL CELL LUNG CANCER
     Dosage: 570.0MG ONCE/SINGLE ADMINISTRATION
     Route: 042
     Dates: start: 20160209, end: 20160209
  2. MEDI4736 [Suspect]
     Active Substance: DURVALUMAB
     Indication: NON-SMALL CELL LUNG CANCER
     Dosage: 600.0MG ONCE/SINGLE ADMINISTRATION
     Route: 042
     Dates: start: 20160607, end: 20160607
  3. MEDI4736 [Suspect]
     Active Substance: DURVALUMAB
     Indication: NON-SMALL CELL LUNG CANCER
     Dosage: 580.0MG ONCE/SINGLE ADMINISTRATION
     Route: 042
     Dates: start: 20160126, end: 20160126
  4. MEDI4736 [Suspect]
     Active Substance: DURVALUMAB
     Indication: NON-SMALL CELL LUNG CANCER
     Dosage: 585.0MG ONCE/SINGLE ADMINISTRATION
     Route: 042
     Dates: start: 20160310, end: 20160310
  5. MEDI4736 [Suspect]
     Active Substance: DURVALUMAB
     Indication: NON-SMALL CELL LUNG CANCER
     Dosage: 580.0MG ONCE/SINGLE ADMINISTRATION
     Route: 042
     Dates: start: 20160329, end: 20160329
  6. MEDI4736 [Suspect]
     Active Substance: DURVALUMAB
     Indication: NON-SMALL CELL LUNG CANCER
     Dosage: 590.0MG ONCE/SINGLE ADMINISTRATION
     Route: 042
     Dates: start: 20160412, end: 20160412
  7. SOLPODEINE [Concomitant]
     Indication: PAIN
     Route: 048
     Dates: start: 20160205
  8. MEDI4736 [Suspect]
     Active Substance: DURVALUMAB
     Indication: NON-SMALL CELL LUNG CANCER
     Dosage: 600.0MG ONCE/SINGLE ADMINISTRATION
     Route: 042
     Dates: start: 20160113, end: 20160113
  9. MEDI4736 [Suspect]
     Active Substance: DURVALUMAB
     Indication: NON-SMALL CELL LUNG CANCER
     Dosage: 590.0MG ONCE/SINGLE ADMINISTRATION
     Route: 042
     Dates: start: 20160524, end: 20160524
  10. MEDI4736 [Suspect]
     Active Substance: DURVALUMAB
     Indication: NON-SMALL CELL LUNG CANCER
     Dosage: 585.0MG ONCE/SINGLE ADMINISTRATION
     Route: 042
     Dates: start: 20160225, end: 20160225
  11. MEDI4736 [Suspect]
     Active Substance: DURVALUMAB
     Indication: NON-SMALL CELL LUNG CANCER
     Dosage: 590.0MG ONCE/SINGLE ADMINISTRATION
     Route: 042
     Dates: start: 20160426, end: 20160426
  12. MEDI4736 [Suspect]
     Active Substance: DURVALUMAB
     Indication: NON-SMALL CELL LUNG CANCER
     Dosage: 590.0MG ONCE/SINGLE ADMINISTRATION
     Route: 042
     Dates: start: 20160705, end: 20160705
  13. MEDI4736 [Suspect]
     Active Substance: DURVALUMAB
     Indication: NON-SMALL CELL LUNG CANCER
     Dosage: ONCE/SINGLE ADMINISTRATION
     Route: 042
     Dates: end: 20160812
  14. MEDI4736 [Suspect]
     Active Substance: DURVALUMAB
     Indication: NON-SMALL CELL LUNG CANCER
     Dosage: 610.0MG ONCE/SINGLE ADMINISTRATION
     Route: 042
     Dates: start: 20151225, end: 20151225
  15. MEDI4736 [Suspect]
     Active Substance: DURVALUMAB
     Indication: NON-SMALL CELL LUNG CANCER
     Dosage: 590.0MG ONCE/SINGLE ADMINISTRATION
     Route: 042
     Dates: start: 20160510, end: 20160510
  16. MEDI4736 [Suspect]
     Active Substance: DURVALUMAB
     Indication: NON-SMALL CELL LUNG CANCER
     Dosage: 590.0MG/KG ONCE/SINGLE ADMINISTRATION
     Route: 042
     Dates: start: 20160621, end: 20160621
  17. MEDI4736 [Suspect]
     Active Substance: DURVALUMAB
     Indication: NON-SMALL CELL LUNG CANCER
     Dosage: 590.0MG ONCE/SINGLE ADMINISTRATION
     Route: 042
     Dates: start: 20160719, end: 20160812
  18. SOLPODEINE [Concomitant]
     Indication: COUGH
     Route: 048
     Dates: start: 20160205
  19. MORPHINE [Concomitant]
     Active Substance: MORPHINE
     Indication: PAIN
     Route: 048
     Dates: start: 20160511, end: 20160925
  20. MORPHINE [Concomitant]
     Active Substance: MORPHINE
     Indication: COUGH
     Route: 048
     Dates: start: 20160511, end: 20160925

REACTIONS (2)
  - Cytokine release syndrome [Recovered/Resolved]
  - Rash [Recovered/Resolved]

NARRATIVE: CASE EVENT DATE: 20160730
